FAERS Safety Report 13888314 (Version 1)
Quarter: 2017Q3

REPORT INFORMATION
  Report Type: Spontaneous
  Country: US (occurrence: US)
  Receive Date: 20170822
  Receipt Date: 20170822
  Transmission Date: 20171127
  Serious: No
  Sender: FDA-Public Use
  Company Number: US-ROCHE-1451094

PATIENT
  Age: 57 Year
  Sex: Female

DRUGS (1)
  1. ACTEMRA [Suspect]
     Active Substance: TOCILIZUMAB
     Indication: PRODUCT USED FOR UNKNOWN INDICATION
     Dosage: QW
     Route: 058
     Dates: start: 201407, end: 20140811

REACTIONS (5)
  - Weight increased [Unknown]
  - Pruritus [Unknown]
  - Abdominal pain upper [Unknown]
  - Mass [Unknown]
  - Swelling face [Unknown]
